FAERS Safety Report 4294671-0 (Version None)
Quarter: 2004Q1

REPORT INFORMATION
  Report Type: 
  Country: None (occurrence: None)
  Receive Date: 20040213
  Receipt Date: 20040203
  Transmission Date: 20041129
  Serious: Yes (Other)
  Sender: FDA-Public Use
  Company Number: JP-GLAXOSMITHKLINE-B0322361A

PATIENT
  Age: 1 Year
  Sex: Male
  Weight: 11 kg

DRUGS (7)
  1. ZOVIRAX [Suspect]
     Indication: ENCEPHALITIS HERPES
     Dosage: 110MG THREE TIMES PER DAY
     Route: 042
     Dates: start: 20031017, end: 20031030
  2. VANCOMYCIN [Concomitant]
     Route: 042
     Dates: start: 20031017, end: 20031027
  3. ZADITEN [Concomitant]
     Route: 065
  4. CEFOTAX [Concomitant]
     Route: 042
     Dates: start: 20031017
  5. VICCILLIN [Concomitant]
     Route: 042
     Dates: start: 20031017, end: 20031021
  6. MIDAZOLAM HCL [Concomitant]
     Route: 042
     Dates: start: 20031017, end: 20031020
  7. CLAFORAN [Concomitant]
     Dates: end: 20031021

REACTIONS (3)
  - ABDOMINAL PAIN [None]
  - PANCREATITIS ACUTE [None]
  - PYREXIA [None]
